FAERS Safety Report 20194841 (Version 1)
Quarter: 2021Q4

REPORT INFORMATION
  Report Type: Report from Study
  Country: ES (occurrence: ES)
  Receive Date: 20211216
  Receipt Date: 20211216
  Transmission Date: 20220303
  Serious: Yes (Death, Other)
  Sender: FDA-Public Use
  Company Number: ES-PFIZER INC-202101781174

PATIENT

DRUGS (2)
  1. PACLITAXEL [Suspect]
     Active Substance: PACLITAXEL
     Indication: Squamous cell carcinoma of head and neck
     Dosage: 80 MG/M2 (ONE HOUR EACH WEEK (QW1))
     Route: 042
  2. VECTIBIX [Suspect]
     Active Substance: PANITUMUMAB
     Indication: Squamous cell carcinoma of head and neck
     Dosage: 6 MG/KG, EVERY 2 WEEKS (Q2W)
     Route: 042

REACTIONS (1)
  - Pneumonia [Fatal]
